FAERS Safety Report 7810890-8 (Version None)
Quarter: 2011Q4

REPORT INFORMATION
  Report Type: 
  Country: None (occurrence: None)
  Receive Date: 20111012
  Receipt Date: 20111012
  Transmission Date: 20120403
  Serious: No
  Sender: FDA-Public Use
  Company Number: None

PATIENT
  Sex: Male

DRUGS (3)
  1. RIBAVIRIN [Suspect]
     Dosage: 600MG BID PO
  2. INCIVEK [Concomitant]
  3. PEGASYS [Suspect]
     Dosage: 180 MCG Q WEEK SQ
     Route: 058
     Dates: start: 20110809, end: 20110901

REACTIONS (6)
  - NAUSEA [None]
  - IRRITABLE BOWEL SYNDROME [None]
  - RASH [None]
  - INSOMNIA [None]
  - FATIGUE [None]
  - HAEMORRHOIDS [None]
